FAERS Safety Report 21284721 (Version 1)
Quarter: 2022Q3

REPORT INFORMATION
  Report Type: Spontaneous
  Country: US (occurrence: US)
  Receive Date: 20220902
  Receipt Date: 20220902
  Transmission Date: 20221027
  Serious: No
  Sender: FDA-Public Use
  Company Number: ENDG22-04047

PATIENT
  Sex: Male
  Weight: 85.261 kg

DRUGS (2)
  1. PREDNISONE [Suspect]
     Active Substance: PREDNISONE
     Indication: Rheumatoid arthritis
     Dosage: 30 MG, Q3W (HIGH-DOSE)
     Route: 065
     Dates: start: 2021
  2. HYDROXYCHLOROQUINE DIPHOSPHATE [Concomitant]
     Active Substance: HYDROXYCHLOROQUINE DIPHOSPHATE
     Indication: Rheumatoid arthritis
     Dosage: UNK UNKNOWN, UNKNOWN
     Route: 065
     Dates: start: 2021

REACTIONS (1)
  - Drug ineffective [Unknown]
